FAERS Safety Report 16062423 (Version 1)
Quarter: 2019Q1

REPORT INFORMATION
  Report Type: Spontaneous
  Country: US (occurrence: US)
  Receive Date: 20190212
  Receipt Date: 20190212
  Transmission Date: 20190418
  Serious: No
  Sender: FDA-Public Use
  Company Number: None

PATIENT
  Age: 70 Year
  Sex: Female

DRUGS (1)
  1. IBRANCE [Suspect]
     Active Substance: PALBOCICLIB
     Dosage: ?          OTHER DOSE:75;?
     Route: 048
     Dates: start: 20180213

REACTIONS (2)
  - Therapy cessation [None]
  - Tooth extraction [None]

NARRATIVE: CASE EVENT DATE: 20190212
